FAERS Safety Report 9536047 (Version 1)
Quarter: 2013Q2

REPORT INFORMATION
  Report Type: Spontaneous
  Country: US (occurrence: None)
  Receive Date: 20130507
  Receipt Date: 20130507
  Transmission Date: 20140414
  Serious: Yes (Other)
  Sender: FDA-Public Use
  Company Number: PHEH2012US025507

PATIENT
  Age: 18 Year
  Sex: Female

DRUGS (8)
  1. AFINITOR [Suspect]
     Indication: TUBEROUS SCLEROSIS
     Route: 048
     Dates: start: 20120111
  2. LAMICTAL (LAMOTRIGINE) [Concomitant]
  3. ALBUTEROL (SALBUTAMOL) [Concomitant]
  4. LISINOPRIL (LISINOPRIL) [Concomitant]
  5. FLOVENT (FLUTICASONE PROPIONATE) [Concomitant]
  6. SINGULAIR [Concomitant]
  7. MELATONIN (MELATONIN) [Concomitant]
  8. SIROLIMUS (SIROLIMUS) [Concomitant]

REACTIONS (1)
  - Laboratory test abnormal [None]
